FAERS Safety Report 25930723 (Version 1)
Quarter: 2025Q4

REPORT INFORMATION
  Report Type: Spontaneous
  Country: EU (occurrence: EU)
  Receive Date: 20251016
  Receipt Date: 20251016
  Transmission Date: 20260118
  Serious: Yes (Hospitalization)
  Sender: TEVA
  Company Number: None

PATIENT
  Age: 54 Year
  Sex: Male

DRUGS (3)
  1. AMIODARONE [Suspect]
     Active Substance: AMIODARONE
     Indication: Arrhythmia
     Route: 048
     Dates: end: 20250125
  2. DIGOXIN [Suspect]
     Active Substance: DIGOXIN
     Indication: Arrhythmia
     Route: 048
     Dates: end: 20250125
  3. BISOPROLOL [Suspect]
     Active Substance: BISOPROLOL
     Indication: Arrhythmia
     Dosage: BISOPROLOL FUMARATE
     Route: 048
     Dates: end: 20250125

REACTIONS (3)
  - Toxicity to various agents [Recovered/Resolved]
  - Bradycardia [Recovered/Resolved]
  - Atrioventricular block second degree [Recovered/Resolved]

NARRATIVE: CASE EVENT DATE: 20250125
